FAERS Safety Report 9596331 (Version 2)
Quarter: 2013Q4

REPORT INFORMATION
  Report Type: Report from Study
  Country: JP (occurrence: JP)
  Receive Date: 20131004
  Receipt Date: 20131209
  Transmission Date: 20140711
  Serious: Yes (Hospitalization, Other)
  Sender: FDA-Public Use
  Company Number: JP-BAYER-2013-117722

PATIENT
  Age: 78 Year
  Sex: Female

DRUGS (5)
  1. STIVARGA [Suspect]
     Indication: COLON CANCER
     Dosage: 160 MG/DAY
     Route: 048
     Dates: start: 20130726, end: 20130801
  2. STIVARGA [Suspect]
     Indication: COLON CANCER
     Dosage: 120 MG/DAY
     Route: 048
     Dates: start: 20130802, end: 20130808
  3. HIRUDOID [Concomitant]
     Indication: PROPHYLAXIS
     Dosage: UNK
     Route: 061
     Dates: start: 20130726, end: 20130905
  4. THYRADIN S [Concomitant]
     Dosage: DAILY DOSE 25 ?G
     Route: 048
     Dates: start: 20130722, end: 20130811
  5. THYRADIN S [Concomitant]
     Dosage: DAILY DOSE 50 ?G
     Route: 048
     Dates: start: 20130812

REACTIONS (17)
  - Stevens-Johnson syndrome [Recovering/Resolving]
  - Malaise [Recovering/Resolving]
  - Decreased appetite [Recovering/Resolving]
  - Hyponatraemia [Recovered/Resolved]
  - Platelet count decreased [Recovered/Resolved]
  - Sinus bradycardia [Recovered/Resolved]
  - White blood cell count decreased [Recovered/Resolved]
  - Palmar-plantar erythrodysaesthesia syndrome [Recovered/Resolved]
  - Aspartate aminotransferase increased [Not Recovered/Not Resolved]
  - Dyspnoea [Recovered/Resolved]
  - Pleural effusion [Recovering/Resolving]
  - Alanine aminotransferase increased [Recovered/Resolved]
  - Blood bilirubin increased [Recovered/Resolved]
  - Proteinuria [Recovered/Resolved]
  - Haemoglobinuria [Recovered/Resolved]
  - Haemorrhoidal haemorrhage [Recovered/Resolved]
  - Hypoxia [Recovered/Resolved]
